FAERS Safety Report 10169373 (Version 2)
Quarter: 2014Q2

REPORT INFORMATION
  Report Type: Report from Study
  Country: GB (occurrence: GB)
  Receive Date: 20140513
  Receipt Date: 20140529
  Transmission Date: 20141212
  Serious: Yes (Hospitalization)
  Sender: FDA-Public Use
  Company Number: GB-009507513-1405GBR006138

PATIENT
  Age: 67 Year
  Sex: Female

DRUGS (2)
  1. VORINOSTAT [Suspect]
     Indication: PLASMA CELL MYELOMA
     Dosage: 200 MG, UNK
     Route: 048
     Dates: start: 20140429, end: 20140507
  2. LENALIDOMIDE [Suspect]
     Indication: PLASMA CELL MYELOMA
     Dosage: 10 MG, UNK
     Route: 048
     Dates: start: 20140429, end: 20140507

REACTIONS (1)
  - Parainfluenzae virus infection [Recovered/Resolved]
